FAERS Safety Report 11379784 (Version 1)
Quarter: 2015Q3

REPORT INFORMATION
  Report Type: Spontaneous
  Country: US (occurrence: None)
  Receive Date: 20150813
  Receipt Date: 20150813
  Transmission Date: 20151125
  Serious: No
  Sender: FDA-Public Use
  Company Number: None

PATIENT
  Age: 27 Year
  Sex: Female
  Weight: 58.97 kg

DRUGS (14)
  1. CIPROFLOXACIN 500MG TEVA [Suspect]
     Active Substance: CIPROFLOXACIN
     Indication: CYSTITIS
     Dosage: 2 PILLS
     Route: 048
  2. OMEGA-3 ACIDS [Concomitant]
     Active Substance: OMEGA-3 FATTY ACIDS
  3. ACETYL-L-CARNITINE [Concomitant]
  4. MAGNESIUM [Concomitant]
     Active Substance: MAGNESIUM
  5. PROBIOTICS [Concomitant]
     Active Substance: PROBIOTICS NOS
  6. GLUCOSAMINE [Concomitant]
     Active Substance: GLUCOSAMINE
  7. ALPHA LIPOC ACID [Concomitant]
  8. N-ACETYL-L-CYSTEINE [Concomitant]
  9. VITAMIN C [Concomitant]
     Active Substance: ASCORBIC ACID
  10. CRANBERRY. [Concomitant]
     Active Substance: CRANBERRY
  11. BIOTIN [Concomitant]
     Active Substance: BIOTIN
  12. VITAMIN B12 [Concomitant]
     Active Substance: CYANOCOBALAMIN
  13. STRESS B COMPLEX [Concomitant]
  14. D3 [Concomitant]
     Active Substance: 25-HYDROXYCHOLECALCIFEROL, 5-TRANS-

REACTIONS (11)
  - Magnesium deficiency [None]
  - Dehydration [None]
  - Pain in extremity [None]
  - Fatigue [None]
  - Feeling cold [None]
  - Arthralgia [None]
  - Feeling hot [None]
  - Muscle spasms [None]
  - Neuropathy peripheral [None]
  - Tendon pain [None]
  - Musculoskeletal pain [None]

NARRATIVE: CASE EVENT DATE: 20150716
